FAERS Safety Report 23198264 (Version 2)
Quarter: 2023Q4

REPORT INFORMATION
  Report Type: Spontaneous
  Country: FR (occurrence: FR)
  Receive Date: 20231117
  Receipt Date: 20231218
  Transmission Date: 20240110
  Serious: Yes (Other)
  Sender: FDA-Public Use
  Company Number: FR-PFIZER INC-PV202300185470

PATIENT
  Age: 74 Year
  Sex: Male

DRUGS (2)
  1. PAXLOVID [Interacting]
     Active Substance: NIRMATRELVIR\RITONAVIR
     Indication: COVID-19 treatment
     Dosage: [PF-07321332 150 MG]/[RITONAVIR 200 MG]; SINGLE DOSE
  2. TAHOR [Interacting]
     Active Substance: ATORVASTATIN CALCIUM
     Dosage: UNK

REACTIONS (7)
  - Drug interaction [Unknown]
  - Rhabdomyolysis [Unknown]
  - Bedridden [Unknown]
  - Tetany [Unknown]
  - Myalgia [Unknown]
  - Incorrect dose administered [Unknown]
  - Malaise [Unknown]
